FAERS Safety Report 17496292 (Version 19)
Quarter: 2022Q1

REPORT INFORMATION
  Report Type: Spontaneous
  Country: ES (occurrence: ES)
  Receive Date: 20200304
  Receipt Date: 20220110
  Transmission Date: 20220423
  Serious: Yes (Death, Life-Threatening, Hospitalization, Other)
  Sender: FDA-Public Use
  Company Number: ES-009507513-2003ESP001044

PATIENT
  Age: 95 Year
  Sex: Female
  Weight: 45 kg

DRUGS (11)
  1. FIDAXOMICIN [Suspect]
     Active Substance: FIDAXOMICIN
     Indication: Clostridium difficile colitis
     Dosage: UNK UNK, UNKNOWN FREQ.
     Route: 048
     Dates: start: 201901
  2. FIDAXOMICIN [Suspect]
     Active Substance: FIDAXOMICIN
     Indication: Clostridium difficile infection
  3. ZINPLAVA [Suspect]
     Active Substance: BEZLOTOXUMAB
     Indication: Clostridium difficile infection
     Dosage: UNK UNK, UNKNOWN FREQ.
     Route: 042
     Dates: start: 20190131
  4. METRONIDAZOLE [Concomitant]
     Active Substance: METRONIDAZOLE
     Indication: Clostridium difficile colitis
     Dosage: UNK, UNKNOWN FREQ.
     Route: 065
  5. METRONIDAZOLE [Concomitant]
     Active Substance: METRONIDAZOLE
     Dosage: UNK, UNKNOWN FREQ.
     Route: 065
  6. VANCOMYCIN [Concomitant]
     Active Substance: VANCOMYCIN
     Indication: Clostridium difficile colitis
     Dosage: UNK UNK, UNKNOWN FREQ. (FOR 4 DAYS)
     Route: 065
  7. VANCOMYCIN [Concomitant]
     Active Substance: VANCOMYCIN
     Indication: Clostridium difficile infection
  8. ENOXAPARIN SODIUM [Concomitant]
     Active Substance: ENOXAPARIN SODIUM
     Indication: Atrial fibrillation
     Dosage: 50 MG, ONCE DAILY (EVERY 24 HOUR)
     Route: 058
     Dates: start: 20170607, end: 20190427
  9. SERTRALINE HYDROCHLORIDE [Concomitant]
     Active Substance: SERTRALINE HYDROCHLORIDE
     Indication: Depression
     Dosage: 50 MG, ONCE DAILY (EVERY24 HOUR)
     Route: 048
     Dates: start: 20181219, end: 20190427
  10. BISOPROLOL [Concomitant]
     Active Substance: BISOPROLOL
     Indication: Atrial fibrillation
     Dosage: 2.5 MG, ONCE DAILY (EVERY 24 HOUR)
     Route: 048
     Dates: start: 20150218, end: 20190427
  11. FOSFOMYCIN [Concomitant]
     Active Substance: FOSFOMYCIN
     Indication: Urinary tract infection
     Dosage: UNK UNK, UNKNOWN FREQ
     Route: 065

REACTIONS (6)
  - Cardiac failure [Fatal]
  - Therapy non-responder [Unknown]
  - Urinary tract infection [Recovered/Resolved]
  - Urinary tract infection [Fatal]
  - Cardiac failure [Recovered/Resolved]
  - Hypotension [Unknown]

NARRATIVE: CASE EVENT DATE: 20190101
